FAERS Safety Report 7141164-9 (Version None)
Quarter: 2010Q4

REPORT INFORMATION
  Report Type: 
  Country: None (occurrence: None)
  Receive Date: 20101202
  Receipt Date: 20101202
  Transmission Date: 20110411
  Serious: No
  Sender: FDA-Public Use
  Company Number: None

PATIENT
  Sex: Male
  Weight: 65.7716 kg

DRUGS (1)
  1. DILTIAZEM [Suspect]
     Dosage: 120MG DAILY
     Dates: start: 20101010, end: 20101022

REACTIONS (5)
  - BLISTER [None]
  - DIZZINESS [None]
  - ILL-DEFINED DISORDER [None]
  - PRURITUS [None]
  - VOMITING [None]
